FAERS Safety Report 6693092-0 (Version None)
Quarter: 2010Q2

REPORT INFORMATION
  Report Type: 
  Country: None (occurrence: None)
  Receive Date: 20100422
  Receipt Date: 20100419
  Transmission Date: 20101027
  Serious: Yes (Death)
  Sender: FDA-Public Use
  Company Number: JP-SANOFI-AVENTIS-A01200902028

PATIENT
  Age: 66 Year
  Sex: Male

DRUGS (4)
  1. ELPLAT [Suspect]
     Indication: RECTAL CANCER
     Route: 041
     Dates: start: 20090126, end: 20090126
  2. CALCIUM LEVOFOLINATE [Suspect]
     Route: 041
     Dates: start: 20090126, end: 20090126
  3. FLUOROURACIL [Suspect]
     Route: 040
     Dates: start: 20090126, end: 20090126
  4. FLUOROURACIL [Suspect]
     Route: 041
     Dates: start: 20090126, end: 20090127

REACTIONS (1)
  - NECROTISING FASCIITIS [None]
